FAERS Safety Report 8066897-1 (Version None)
Quarter: 2012Q1

REPORT INFORMATION
  Report Type: 
  Country: None (occurrence: None)
  Receive Date: 20120124
  Receipt Date: 20120117
  Transmission Date: 20120608
  Serious: Yes (Other)
  Sender: FDA-Public Use
  Company Number: PHHY2012HR003968

PATIENT
  Age: 64 Year
  Sex: Male
  Weight: 79 kg

DRUGS (5)
  1. ROCALTROL [Concomitant]
     Dosage: 0.5 UG, QD
     Route: 048
     Dates: start: 20050101
  2. KETOPROFEN [Interacting]
     Indication: MUSCULOSKELETAL PAIN
     Dosage: 100 MG, UNK
     Route: 030
     Dates: start: 20100724, end: 20100729
  3. NOVOLOG MIX 70/30 [Concomitant]
     Indication: DIABETES MELLITUS
     Dosage: 1 DF, UNK
     Route: 058
     Dates: start: 20060101
  4. NORVASC [Concomitant]
     Indication: HYPERTENSION
     Dosage: 5 MG, QD
     Route: 048
     Dates: start: 20070101
  5. HEPARIN [Suspect]
     Dosage: 5000 IU, UNK
     Route: 042
     Dates: start: 20050501

REACTIONS (2)
  - DRUG INTERACTION [None]
  - HAEMORRHOIDAL HAEMORRHAGE [None]
